FAERS Safety Report 5871223-X (Version None)
Quarter: 2008Q3

REPORT INFORMATION
  Report Type: 
  Country: None (occurrence: None)
  Receive Date: 20080829
  Receipt Date: 20080709
  Transmission Date: 20090109
  Serious: Yes (Hospitalization)
  Sender: FDA-Public Use
  Company Number: 2008-00752FE

PATIENT
  Age: 14 Year
  Sex: Female

DRUGS (1)
  1. MINIRIN [Suspect]
     Indication: ENURESIS
     Dosage: 10 MCG
     Dates: start: 20070713

REACTIONS (2)
  - HEADACHE [None]
  - WATER INTOXICATION [None]
